FAERS Safety Report 6359931-8 (Version None)
Quarter: 2009Q3

REPORT INFORMATION
  Report Type: 
  Country: None (occurrence: None)
  Receive Date: 20090917
  Receipt Date: 20090904
  Transmission Date: 20100115
  Serious: Yes (Other)
  Sender: FDA-Public Use
  Company Number: ES-PFIZER INC-2009244590

PATIENT
  Age: 53 Year

DRUGS (3)
  1. CHAMPIX [Suspect]
     Indication: SMOKING CESSATION THERAPY
     Route: 048
     Dates: start: 20090701
  2. PREVENCOR [Concomitant]
     Dosage: UNK
  3. DIOVAN [Concomitant]
     Dosage: UNK

REACTIONS (1)
  - NARCOLEPSY [None]
